FAERS Safety Report 6645764-1 (Version None)
Quarter: 2010Q1

REPORT INFORMATION
  Report Type: 
  Country: None (occurrence: None)
  Receive Date: 20100318
  Receipt Date: 20100318
  Transmission Date: 20100710
  Serious: Yes (Hospitalization)
  Sender: FDA-Public Use
  Company Number: None

PATIENT
  Age: 84 Year
  Sex: Female
  Weight: 57 kg

DRUGS (1)
  1. MEGACE [Suspect]
     Indication: DECREASED APPETITE
     Dosage: 400MG DAILY PO
     Route: 048
     Dates: start: 20100224, end: 20100310

REACTIONS (1)
  - VENOUS THROMBOSIS LIMB [None]
